FAERS Safety Report 5335470-8 (Version None)
Quarter: 2007Q2

REPORT INFORMATION
  Report Type: 
  Country: None (occurrence: None)
  Receive Date: 20070525
  Receipt Date: 20070516
  Transmission Date: 20071010
  Serious: Yes (Other)
  Sender: FDA-Public Use
  Company Number: FR-PFIZER INC-2007040374

PATIENT
  Sex: Female

DRUGS (4)
  1. ZOLOFT [Suspect]
     Indication: CHEST PAIN
  2. MILLEPERTUIS [Interacting]
  3. MAGNESIUM CARBONATE [Concomitant]
  4. EUPHYTOSE [Concomitant]

REACTIONS (5)
  - CHEST PAIN [None]
  - DRUG INTERACTION [None]
  - DYSKINESIA [None]
  - HEADACHE [None]
  - SEROTONIN SYNDROME [None]
